FAERS Safety Report 9120146 (Version 2)
Quarter: 2013Q3

REPORT INFORMATION
  Report Type: Spontaneous
  Country: US (occurrence: US)
  Receive Date: 20130226
  Receipt Date: 20130710
  Transmission Date: 20140515
  Serious: Yes (Other)
  Sender: FDA-Public Use
  Company Number: US-JNJFOC-20130213022

PATIENT
  Sex: Male
  Weight: 104.33 kg

DRUGS (11)
  1. NUCYNTA ER [Suspect]
     Indication: NEUROPATHY PERIPHERAL
     Dosage: 1 IN AM AND 1 IN PM
     Route: 048
     Dates: start: 201301
  2. NUCYNTA ER [Suspect]
     Indication: NEUROPATHY PERIPHERAL
     Dosage: 1 IN AM AND 1 IN PM
     Route: 048
     Dates: start: 201212, end: 201301
  3. XARELTO [Concomitant]
     Indication: ATRIAL FIBRILLATION
     Route: 048
  4. LISINOPRIL [Concomitant]
     Indication: CARDIAC DISORDER
     Route: 048
  5. ATENOLOL [Concomitant]
     Indication: CARDIAC DISORDER
     Route: 048
  6. CRESTOR [Concomitant]
     Indication: BLOOD CHOLESTEROL
     Route: 048
  7. MELOXICAM [Concomitant]
     Indication: MUSCULOSKELETAL PAIN
     Route: 065
  8. MULTIVITAMINS [Concomitant]
     Indication: VITAMIN SUPPLEMENTATION
     Route: 048
  9. SYMBICORT [Concomitant]
     Indication: RESPIRATORY DISORDER
     Route: 055
  10. ALBUTEROL [Concomitant]
     Indication: RESPIRATORY DISORDER
     Route: 055
  11. UNKNOWN MEDICATION [Concomitant]
     Indication: RESPIRATORY DISORDER
     Route: 065

REACTIONS (6)
  - Parkinson^s disease [Not Recovered/Not Resolved]
  - Head injury [Recovered/Resolved]
  - Drug ineffective [Not Recovered/Not Resolved]
  - Fall [Recovered/Resolved]
  - Pain in extremity [Not Recovered/Not Resolved]
  - Off label use [Unknown]
